FAERS Safety Report 21165944 (Version 2)
Quarter: 2022Q3

REPORT INFORMATION
  Report Type: Spontaneous
  Country: US (occurrence: US)
  Receive Date: 20220803
  Receipt Date: 20220812
  Transmission Date: 20221027
  Serious: Yes (Life-Threatening, Other)
  Sender: FDA-Public Use
  Company Number: US-drreddys-LIT/USA/22/0152981

PATIENT
  Age: 41 Year
  Sex: Male

DRUGS (12)
  1. DIPHENHYDRAMINE HYDROCHLORIDE [Suspect]
     Active Substance: DIPHENHYDRAMINE HYDROCHLORIDE
     Indication: Anxiety
  2. DIPHENHYDRAMINE HYDROCHLORIDE [Suspect]
     Active Substance: DIPHENHYDRAMINE HYDROCHLORIDE
     Indication: Insomnia
  3. XANAX [Suspect]
     Active Substance: ALPRAZOLAM
     Indication: Anxiety
     Dosage: 0.5MG EVERY 8H AS NEEDED
  4. XANAX [Suspect]
     Active Substance: ALPRAZOLAM
     Indication: Insomnia
  5. VALIUM [Suspect]
     Active Substance: DIAZEPAM
     Indication: Anxiety
     Dosage: 5MG TWICE DAILY AS NEEDED
  6. VALIUM [Suspect]
     Active Substance: DIAZEPAM
     Indication: Insomnia
  7. LUNESTA [Suspect]
     Active Substance: ESZOPICLONE
     Indication: Anxiety
  8. LUNESTA [Suspect]
     Active Substance: ESZOPICLONE
     Indication: Insomnia
  9. AMBIEN CR [Suspect]
     Active Substance: ZOLPIDEM TARTRATE
     Indication: Anxiety
  10. AMBIEN CR [Suspect]
     Active Substance: ZOLPIDEM TARTRATE
     Indication: Insomnia
  11. PAXIL [Suspect]
     Active Substance: PAROXETINE HYDROCHLORIDE
     Indication: Anxiety
  12. PAXIL [Suspect]
     Active Substance: PAROXETINE HYDROCHLORIDE
     Indication: Insomnia

REACTIONS (3)
  - Drug ineffective [Unknown]
  - Anxiety [Recovered/Resolved]
  - Insomnia [Recovered/Resolved]
